FAERS Safety Report 9969827 (Version 1)
Quarter: 2014Q1

REPORT INFORMATION
  Report Type: Report from Study
  Country: US (occurrence: US)
  Receive Date: 20140306
  Receipt Date: 20140306
  Transmission Date: 20141002
  Serious: Yes (Other)
  Sender: FDA-Public Use
  Company Number: US-JNJFOC-20140218016

PATIENT
  Age: 68 Year
  Sex: Female
  Weight: 73.94 kg

DRUGS (2)
  1. REMICADE [Suspect]
     Indication: COLITIS ULCERATIVE
     Route: 042
     Dates: start: 201306
  2. LISINOPRIL [Concomitant]
     Indication: BLOOD PRESSURE
     Route: 048
     Dates: start: 2013

REACTIONS (3)
  - Precancerous cells present [Not Recovered/Not Resolved]
  - Polyp [Not Recovered/Not Resolved]
  - Inflammation [Not Recovered/Not Resolved]
